FAERS Safety Report 7414965-7 (Version None)
Quarter: 2011Q2

REPORT INFORMATION
  Report Type: 
  Country: None (occurrence: None)
  Receive Date: 20110414
  Receipt Date: 20110407
  Transmission Date: 20111010
  Serious: Yes (Other)
  Sender: FDA-Public Use
  Company Number: US-ROCHE-468696

PATIENT
  Sex: Male
  Weight: 59 kg

DRUGS (5)
  1. BREVOXYL [Concomitant]
     Route: 061
     Dates: start: 20030716
  2. ACCUTANE [Suspect]
     Route: 048
     Dates: end: 20030901
  3. ACCUTANE [Suspect]
     Route: 048
     Dates: start: 20021230, end: 20030601
  4. CLINDAMYCIN TOPICAL GEL [Concomitant]
     Indication: XEROSIS
     Dosage: DRUG REPORTED AS CLINDAGEL. TAKEN AT BEDTIME.
     Route: 061
     Dates: start: 20030129
  5. TRIMOX [Concomitant]
     Dates: start: 20030101

REACTIONS (13)
  - CROHN'S DISEASE [None]
  - COLITIS [None]
  - GASTROINTESTINAL INJURY [None]
  - XEROSIS [None]
  - COLONIC STENOSIS [None]
  - DEPRESSION [None]
  - IRRITABLE BOWEL SYNDROME [None]
  - OSTEOPENIA [None]
  - WEIGHT DECREASED [None]
  - IRON DEFICIENCY ANAEMIA [None]
  - INTESTINAL HAEMORRHAGE [None]
  - INFLAMMATORY BOWEL DISEASE [None]
  - ANXIETY [None]
